FAERS Safety Report 10539982 (Version 1)
Quarter: 2014Q4

REPORT INFORMATION
  Report Type: Spontaneous
  Country: US (occurrence: None)
  Receive Date: 20141023
  Receipt Date: 20141023
  Transmission Date: 20150529
  Serious: No
  Sender: FDA-Public Use
  Company Number: None

PATIENT
  Age: 59 Year
  Sex: Male
  Weight: 86.18 kg

DRUGS (5)
  1. AMLODIPINE [Suspect]
     Active Substance: AMLODIPINE BESYLATE
     Indication: BLOOD PRESSURE
     Dosage: 10MG, 1 PILL DAILY, DAILY, BY MOUTH
     Route: 048
     Dates: start: 201402, end: 201406
  2. HYDROCODONE [Concomitant]
     Active Substance: HYDROCODONE
  3. DIAZAPAM 10 MG GEL [Concomitant]
     Active Substance: DIAZEPAM
  4. ONE A DAY MULTIPLE VITAMIN [Concomitant]
  5. ADVIL [Concomitant]
     Active Substance: IBUPROFEN

REACTIONS (6)
  - Poisoning [None]
  - Product substitution issue [None]
  - Malaise [None]
  - Product quality issue [None]
  - Gastrointestinal disorder [None]
  - Decreased appetite [None]

NARRATIVE: CASE EVENT DATE: 201403
